FAERS Safety Report 9156948 (Version 3)
Quarter: 2014Q1

REPORT INFORMATION
  Report Type: Spontaneous
  Country: US (occurrence: US)
  Receive Date: 20130312
  Receipt Date: 20140219
  Transmission Date: 20141002
  Serious: Yes (Hospitalization)
  Sender: FDA-Public Use
  Company Number: US-BAYER-2013-028416

PATIENT
  Age: 36 Year
  Sex: Female
  Weight: 90.07 kg

DRUGS (17)
  1. YAZ [Suspect]
     Indication: PREMENSTRUAL DYSPHORIC DISORDER
  2. YAZ [Suspect]
     Indication: ACNE
  3. GIANVI [Suspect]
     Indication: PREMENSTRUAL DYSPHORIC DISORDER
     Dosage: UNK
     Dates: start: 2010, end: 2012
  4. NPH INSULIN [Concomitant]
     Indication: TYPE 1 DIABETES MELLITUS
  5. REGULAR INSULIN [Concomitant]
     Indication: TYPE 1 DIABETES MELLITUS
  6. CYMBALTA [Concomitant]
  7. PROCHLORPERAZINE [Concomitant]
     Dosage: 10 MG, UNK
  8. DICLOFENAC SODIUM [Concomitant]
     Dosage: 75 MG, UNK
  9. HYDROCODONE/ACETAMINOPHEN [Concomitant]
     Dosage: 5 MG, UNK
  10. HYDROCODONE/ACETAMINOPHEN [Concomitant]
     Dosage: 500 MG, UNK
  11. ZOLPIDEM [Concomitant]
     Dosage: 10 MG, UNK
  12. CYCLOBENZAPRINE [Concomitant]
     Dosage: 10 MG, UNK
  13. OXYCODONE W/PARACETAMOL [Concomitant]
     Dosage: 5 MG, UNK
  14. OXYCODONE W/PARACETAMOL [Concomitant]
     Dosage: 325 MG, UNK
  15. INSULIN [Concomitant]
     Indication: DIABETIC KETOACIDOSIS
  16. AMBIEN [Concomitant]
  17. ASPIRIN [Concomitant]
     Indication: MYOCARDIAL INFARCTION

REACTIONS (4)
  - Myocardial infarction [None]
  - Injury [None]
  - Pain [None]
  - Pain [None]
